FAERS Safety Report 6788939-3 (Version None)
Quarter: 2010Q2

REPORT INFORMATION
  Report Type: 
  Country: None (occurrence: None)
  Receive Date: 20100623
  Receipt Date: 20080523
  Transmission Date: 20101027
  Serious: No
  Sender: FDA-Public Use
  Company Number: US-PFIZER INC-2008045602

PATIENT
  Age: 70 Year
  Sex: Female
  Weight: 60.33 kg

DRUGS (4)
  1. NIFEDIPINE [Suspect]
     Indication: HYPERTENSION
     Route: 048
     Dates: start: 20080401
  2. LEVOTHYROXINE SODIUM [Concomitant]
  3. AXID [Concomitant]
  4. ATENOLOL [Concomitant]

REACTIONS (4)
  - DYSPEPSIA [None]
  - FATIGUE [None]
  - PYREXIA [None]
  - URINARY TRACT INFECTION [None]
